FAERS Safety Report 4340250-6 (Version None)
Quarter: 2004Q1

REPORT INFORMATION
  Report Type: 
  Country: None (occurrence: None)
  Receive Date: 20040329
  Receipt Date: 20031231
  Transmission Date: 20041129
  Serious: No
  Sender: FDA-Public Use
  Company Number: 04P-163-0246105-00

PATIENT
  Age: 77 Year
  Sex: Female

DRUGS (13)
  1. HUMIRA [Suspect]
     Indication: RHEUMATOID ARTHRITIS
     Dosage: 40 MG, SUBCUTANEOUS
     Route: 058
     Dates: start: 20030601
  2. LEVOTHYROXINE SODIUM [Concomitant]
  3. MULTI-VITAMINS [Concomitant]
  4. FOLIC ACID [Concomitant]
  5. CLARINEX [Concomitant]
  6. FISH OIL [Concomitant]
  7. CALCIUM CITRATE [Concomitant]
  8. AMLODIPINE BESYLATE [Concomitant]
  9. DOCUSATE SODIUM [Concomitant]
  10. AZELASTINE HCL [Concomitant]
  11. OPTIVAR [Concomitant]
  12. METHOTREXATE [Concomitant]
  13. ALENDRONATE SODIUM [Concomitant]

REACTIONS (1)
  - ERYTHEMA [None]
